FAERS Safety Report 23501421 (Version 2)
Quarter: 2025Q1

REPORT INFORMATION
  Report Type: Spontaneous
  Country: US (occurrence: US)
  Receive Date: 20240208
  Receipt Date: 20250312
  Transmission Date: 20250409
  Serious: Yes (Other)
  Sender: SANOFI AVENTIS
  Company Number: US-SA-SAC20240206000827

PATIENT
  Age: 15 Year
  Sex: Female

DRUGS (6)
  1. DUPIXENT [Suspect]
     Active Substance: DUPILUMAB
     Indication: Asthma
     Route: 058
     Dates: start: 20240131, end: 20240131
  2. DUPIXENT [Suspect]
     Active Substance: DUPILUMAB
     Dosage: 300 MG, QOW
     Route: 058
  3. SPIRIVA [Concomitant]
     Active Substance: TIOTROPIUM BROMIDE MONOHYDRATE
  4. SYMBICORT [Concomitant]
     Active Substance: BUDESONIDE\FORMOTEROL FUMARATE DIHYDRATE
  5. LORATADINE [Concomitant]
     Active Substance: LORATADINE
  6. ALBUTEROL SULFATE [Concomitant]
     Active Substance: ALBUTEROL SULFATE

REACTIONS (6)
  - Loss of consciousness [Unknown]
  - Insomnia [Not Recovered/Not Resolved]
  - Asthma [Recovering/Resolving]
  - Wheezing [Recovering/Resolving]
  - Dyspnoea [Recovering/Resolving]
  - Breathing-related sleep disorder [Not Recovered/Not Resolved]

NARRATIVE: CASE EVENT DATE: 20240101
